FAERS Safety Report 20269184 (Version 1)
Quarter: 2022Q1

REPORT INFORMATION
  Report Type: Other
  Country: GB (occurrence: GB)
  Receive Date: 20220101
  Receipt Date: 20220101
  Transmission Date: 20220423
  Serious: No
  Sender: FDA-Public Use
  Company Number: GB-MHRA-INP718E8617-5779-4369-B1E5-E01FEB5E22F5

PATIENT
  Age: 46 Year
  Sex: Male
  Weight: 112 kg

DRUGS (3)
  1. SERTRALINE [Suspect]
     Active Substance: SERTRALINE HYDROCHLORIDE
     Indication: Chest pain
     Dosage: UNK,
     Route: 048
  2. SERTRALINE [Suspect]
     Active Substance: SERTRALINE HYDROCHLORIDE
     Indication: Chest pain
  3. SERTRALINE [Concomitant]
     Active Substance: SERTRALINE HYDROCHLORIDE
     Indication: Product used for unknown indication
     Dosage: UNK UNK, QD (1/2 TABLET ONCE DAILY FOR 1 WEEK AND THEN ONCE DAILY )
     Route: 065
     Dates: start: 20211209

REACTIONS (1)
  - Nausea [Recovering/Resolving]

NARRATIVE: CASE EVENT DATE: 20211209
